FAERS Safety Report 20987809 (Version 1)
Quarter: 2022Q2

REPORT INFORMATION
  Report Type: Spontaneous
  Country: US (occurrence: None)
  Receive Date: 20220620
  Receipt Date: 20220620
  Transmission Date: 20220721
  Serious: Yes (Hospitalization)
  Sender: FDA-Public Use
  Company Number: None

PATIENT
  Age: 66 Year
  Sex: Female

DRUGS (3)
  1. AFINITOR [Suspect]
     Active Substance: EVEROLIMUS
     Indication: Breast cancer in situ
     Dosage: OTHER FREQUENCY : EVERY EVENING;?
     Route: 048
     Dates: start: 20220603
  2. AFINITOR [Suspect]
     Active Substance: EVEROLIMUS
     Dosage: OTHER FREQUENCY : EVERY EVENING;?
     Route: 048
  3. EXEMESTANE [Concomitant]
     Active Substance: EXEMESTANE

REACTIONS (2)
  - Infection [None]
  - Pneumonia [None]

NARRATIVE: CASE EVENT DATE: 20220611
